FAERS Safety Report 8987323 (Version 1)
Quarter: 2012Q4

REPORT INFORMATION
  Report Type: 
  Country: US (occurrence: US)
  Receive Date: 20121226
  Receipt Date: 20121226
  Transmission Date: 20130627
  Serious: Yes (Other)
  Sender: FDA-Public Use
  Company Number: US-PFIZER INC-2012324955

PATIENT
  Age: 86 Year
  Sex: Female
  Weight: 54.42 kg

DRUGS (3)
  1. XALATAN [Suspect]
     Indication: GLAUCOMA
     Dosage: 1 Gtt, daily
     Route: 047
  2. LIPITOR [Concomitant]
     Dosage: 10 mg,daily
  3. DEXLANSOPRAZOLE [Concomitant]
     Indication: GERD
     Dosage: 60 mg,daily

REACTIONS (5)
  - Glaucoma [Unknown]
  - Cataract [Unknown]
  - Eye inflammation [Unknown]
  - Visual impairment [Unknown]
  - Corneal abrasion [Recovered/Resolved]
